FAERS Safety Report 17823095 (Version 2)
Quarter: 2023Q2

REPORT INFORMATION
  Report Type: Spontaneous
  Country: IR (occurrence: IR)
  Receive Date: 20200526
  Receipt Date: 20230505
  Transmission Date: 20230721
  Serious: Yes (Other)
  Sender: FDA-Public Use
  Company Number: IR-NOVARTISPH-NVSC2020IR137147

PATIENT
  Age: 29 Year
  Sex: Female
  Weight: 44 kg

DRUGS (1)
  1. JADENU [Suspect]
     Active Substance: DEFERASIROX
     Indication: Sickle cell anaemia
     Dosage: 360 MG, QD (THRICE A DAY, 8MG/KG/DAY))
     Route: 048
     Dates: start: 20200430

REACTIONS (3)
  - Eye colour change [Not Recovered/Not Resolved]
  - Insomnia [Not Recovered/Not Resolved]
  - Face oedema [Not Recovered/Not Resolved]

NARRATIVE: CASE EVENT DATE: 20200430
